FAERS Safety Report 7807498-7 (Version None)
Quarter: 2011Q4

REPORT INFORMATION
  Report Type: 
  Country: None (occurrence: None)
  Receive Date: 20111011
  Receipt Date: 20111007
  Transmission Date: 20120403
  Serious: Yes (Hospitalization)
  Sender: FDA-Public Use
  Company Number: US-GLAXOSMITHKLINE-A0766677A

PATIENT
  Sex: Male
  Weight: 104.5 kg

DRUGS (15)
  1. ARTHROTEC [Concomitant]
  2. AVANDAMET [Suspect]
     Indication: DIABETES MELLITUS
     Route: 048
  3. COUMADIN [Concomitant]
  4. AVANDIA [Suspect]
     Indication: TYPE 2 DIABETES MELLITUS
     Route: 065
  5. ASPIRIN [Concomitant]
  6. DIGOXIN [Concomitant]
  7. ZESTRIL [Concomitant]
  8. POTASSIUM CHLORIDE [Concomitant]
  9. DILTIAZEM HCL [Concomitant]
  10. LEVAQUIN [Concomitant]
  11. LASIX [Concomitant]
  12. LIPITOR [Concomitant]
  13. DURAGESIC-100 [Concomitant]
  14. SPIRONOLACTONE [Concomitant]
  15. COREG [Concomitant]

REACTIONS (1)
  - CEREBROVASCULAR ACCIDENT [None]
